FAERS Safety Report 23066296 (Version 1)
Quarter: 2023Q4

REPORT INFORMATION
  Report Type: Spontaneous
  Country: NL (occurrence: NL)
  Receive Date: 20231015
  Receipt Date: 20231015
  Transmission Date: 20240109
  Serious: Yes (Other)
  Sender: FDA-Public Use
  Company Number: None

PATIENT
  Age: 34 Year
  Sex: Female
  Weight: 71 kg

DRUGS (1)
  1. DOXYCYCLINE [Suspect]
     Active Substance: DOXYCYCLINE
     Indication: Skin disorder
     Dosage: 100 MILLIGRAM DAILY; 1X PER DAY 1 TABLET, DOXYCYCLINE DISPERTABLET 100MG / BRAND NAME NOT SPECIFIED
     Dates: start: 20230901

REACTIONS (1)
  - Haematochezia [Not Recovered/Not Resolved]
